FAERS Safety Report 9370101 (Version 1)
Quarter: 2013Q2

REPORT INFORMATION
  Report Type: Spontaneous
  Country: US (occurrence: None)
  Receive Date: 20130621
  Receipt Date: 20130621
  Transmission Date: 20140414
  Serious: Yes (Hospitalization)
  Sender: FDA-Public Use
  Company Number: 2013AP006142

PATIENT
  Age: 69 Year
  Sex: Female

DRUGS (2)
  1. AMLODIPINE BESYLATE TABLETS [Suspect]
     Indication: OVERDOSE
  2. ATENOLOL [Suspect]
     Indication: OVERDOSE

REACTIONS (7)
  - Intentional overdose [None]
  - Vomiting [None]
  - Somnolence [None]
  - Unresponsive to stimuli [None]
  - Shock [None]
  - Ventricular fibrillation [None]
  - Suicide attempt [None]
